FAERS Safety Report 16189651 (Version 1)
Quarter: 2019Q2

REPORT INFORMATION
  Report Type: Spontaneous
  Country: DE (occurrence: DE)
  Receive Date: 20190412
  Receipt Date: 20190412
  Transmission Date: 20190711
  Serious: Yes (Hospitalization, Other)
  Sender: FDA-Public Use
  Company Number: DE-MYLANLABS-2019M1034423

PATIENT
  Age: 48 Year
  Sex: Male

DRUGS (7)
  1. LAMISIL [Suspect]
     Active Substance: TERBINAFINE HYDROCHLORIDE
     Indication: ONYCHOMYCOSIS
     Dosage: 250 MILLIGRAM, QD
     Route: 048
     Dates: start: 20030321, end: 20030323
  2. BISOPROLOL [Interacting]
     Active Substance: BISOPROLOL
     Dosage: DOSAGE INCREASED
     Route: 065
     Dates: start: 200311, end: 200311
  3. AMIOXID-NEURAXPHARM [Interacting]
     Active Substance: AMITRIPTYLINOXIDE
     Dosage: 30 MILLIGRAM, QD
     Route: 048
     Dates: start: 200311, end: 200311
  4. AMIOXID-NEURAXPHARM [Interacting]
     Active Substance: AMITRIPTYLINOXIDE
     Indication: PRODUCT USED FOR UNKNOWN INDICATION
     Dosage: 30 MILLIGRAM, QD
     Route: 048
     Dates: start: 2003, end: 200311
  5. BISOPROLOL [Suspect]
     Active Substance: BISOPROLOL
     Indication: PRODUCT USED FOR UNKNOWN INDICATION
     Dosage: UNK
     Route: 065
     Dates: end: 200311
  6. AMIOXID-NEURAXPHARM [Interacting]
     Active Substance: AMITRIPTYLINOXIDE
     Dosage: DOSAGE REDUCED
     Route: 065
     Dates: start: 200311
  7. BISOPROLOL [Interacting]
     Active Substance: BISOPROLOL
     Dosage: DOSAGE REDUCED
     Route: 065
     Dates: start: 200311

REACTIONS (4)
  - Drug interaction [Unknown]
  - Arrhythmia [Recovered/Resolved]
  - Hyperhidrosis [Recovered/Resolved]
  - Tachycardia [Recovered/Resolved]

NARRATIVE: CASE EVENT DATE: 20030321
